FAERS Safety Report 12095454 (Version 3)
Quarter: 2016Q4

REPORT INFORMATION
  Report Type: Spontaneous
  Country: US (occurrence: US)
  Receive Date: 20160219
  Receipt Date: 20161028
  Transmission Date: 20170206
  Serious: Yes (Other)
  Sender: FDA-Public Use
  Company Number: US-PFIZER INC-2016097201

PATIENT
  Age: 12 Year
  Sex: Female
  Weight: 93 kg

DRUGS (4)
  1. NEURONTIN [Suspect]
     Active Substance: GABAPENTIN
     Indication: NERVOUS SYSTEM DISORDER
     Dosage: 2.5 ML, DAILY
     Route: 048
  2. NEURONTIN [Suspect]
     Active Substance: GABAPENTIN
     Dosage: 1.6 ML, DAILY
     Route: 048
     Dates: start: 201601
  3. METHYLFOLATE [Concomitant]
     Indication: METHYLENETETRAHYDROFOLATE REDUCTASE GENE MUTATION
     Dosage: 15 MG TABLET 1/4 TAB, 2X/DAY
     Dates: start: 20150526
  4. PROAIR HFA [Concomitant]
     Active Substance: ALBUTEROL SULFATE
     Indication: ASTHMA
     Dosage: 90 UG, AS NEEDED
     Dates: start: 20130501

REACTIONS (19)
  - Disease recurrence [Unknown]
  - Lymph node pain [Unknown]
  - Generalised anxiety disorder [Unknown]
  - Abdominal pain lower [Unknown]
  - Product odour abnormal [Not Recovered/Not Resolved]
  - Guillain-Barre syndrome [Unknown]
  - Abdominal pain upper [Unknown]
  - Rosacea [Unknown]
  - Motor dysfunction [Not Recovered/Not Resolved]
  - Nausea [Unknown]
  - Panic attack [Unknown]
  - Condition aggravated [Unknown]
  - Sleep disorder [Unknown]
  - Swelling face [Unknown]
  - Narcolepsy [Unknown]
  - Memory impairment [Not Recovered/Not Resolved]
  - Tinnitus [Unknown]
  - Visual impairment [Unknown]
  - Activities of daily living impaired [Unknown]
